FAERS Safety Report 23994510 (Version 1)
Quarter: 2024Q2

REPORT INFORMATION
  Report Type: Spontaneous
  Country: AU (occurrence: AU)
  Receive Date: 20240620
  Receipt Date: 20240620
  Transmission Date: 20240717
  Serious: Yes (Death, Other)
  Sender: FDA-Public Use
  Company Number: None

PATIENT
  Age: 47 Year
  Sex: Male

DRUGS (1)
  1. NUCYNTA [Interacting]
     Active Substance: TAPENTADOL HYDROCHLORIDE
     Indication: Product used for unknown indication
     Dosage: UNK, UNKNOWN
     Route: 065

REACTIONS (4)
  - Pneumonia [Fatal]
  - Toxicity to various agents [Fatal]
  - Accident [Fatal]
  - Drug interaction [Fatal]

NARRATIVE: CASE EVENT DATE: 20211207
